FAERS Safety Report 18773957 (Version 1)
Quarter: 2021Q1

REPORT INFORMATION
  Report Type: Report from Study
  Country: US (occurrence: US)
  Receive Date: 20210122
  Receipt Date: 20210122
  Transmission Date: 20210419
  Serious: Yes (Hospitalization)
  Sender: FDA-Public Use
  Company Number: US-JNJFOC-20210117184

PATIENT
  Age: 55 Year
  Sex: Female
  Weight: 107.14 kg

DRUGS (2)
  1. TADALAFIL. [Concomitant]
     Active Substance: TADALAFIL
  2. MACITENTAN [Suspect]
     Active Substance: MACITENTAN
     Indication: PULMONARY ARTERIAL HYPERTENSION
     Route: 048
     Dates: start: 202101

REACTIONS (4)
  - Pruritus [Unknown]
  - Blood pressure decreased [Unknown]
  - Joint swelling [Unknown]
  - Dysgeusia [Unknown]

NARRATIVE: CASE EVENT DATE: 202101
